FAERS Safety Report 13485784 (Version 1)
Quarter: 2017Q2

REPORT INFORMATION
  Report Type: Spontaneous
  Country: US (occurrence: US)
  Receive Date: 20170426
  Receipt Date: 20170426
  Transmission Date: 20170830
  Serious: No
  Sender: FDA-Public Use
  Company Number: US-009507513-1704USA000037

PATIENT
  Age: 32 Year
  Sex: Female

DRUGS (9)
  1. CROMOLYN SODIUM - USP (WARRICK) [Suspect]
     Active Substance: CROMOLYN SODIUM
     Indication: PYODERMA GANGRENOSUM
     Dosage: UNK, TWICE DAILY
     Route: 061
  2. PREDNISONE. [Concomitant]
     Active Substance: PREDNISONE
     Dosage: 40 MG, UNK
     Route: 048
  3. PREDNISONE. [Concomitant]
     Active Substance: PREDNISONE
     Dosage: LESS THAN 40 MG DAILY
     Route: 048
  4. TRIAMCINOLONE [Concomitant]
     Active Substance: TRIAMCINOLONE
     Indication: PYODERMA GANGRENOSUM
     Dosage: 40 MG/ML, UNK
     Route: 026
  5. CLOBETASOL PROPIONATE. [Concomitant]
     Active Substance: CLOBETASOL PROPIONATE
     Indication: PYODERMA GANGRENOSUM
     Dosage: UNK, TWICE DAILY
  6. DAPSONE. [Concomitant]
     Active Substance: DAPSONE
     Indication: PYODERMA GANGRENOSUM
     Dosage: 100 MG DAILY
  7. PREDNISONE. [Concomitant]
     Active Substance: PREDNISONE
     Indication: CROHN^S DISEASE
     Dosage: 100 MG, QD
     Route: 048
  8. CYCLOSPORINE. [Concomitant]
     Active Substance: CYCLOSPORINE
     Indication: PYODERMA GANGRENOSUM
     Dosage: 5 MG/KG DAILY
  9. PREDNISONE. [Concomitant]
     Active Substance: PREDNISONE
     Dosage: 35 MG DAILY
     Route: 048

REACTIONS (1)
  - Drug ineffective [Unknown]
